FAERS Safety Report 9027117 (Version 1)
Quarter: 2013Q1

REPORT INFORMATION
  Report Type: Spontaneous
  Country: DE (occurrence: DE)
  Receive Date: 20130123
  Receipt Date: 20130123
  Transmission Date: 20140127
  Serious: Yes (Other)
  Sender: FDA-Public Use
  Company Number: DE-MYLANLABS-2013S1000587

PATIENT
  Age: 0 Year
  Sex: Female
  Weight: 3.5 kg

DRUGS (6)
  1. MIRTAZAPIN [Suspect]
     Dosage: 30 [MG/D ]
     Route: 064
     Dates: start: 20111103, end: 20120817
  2. CITALOPRAM [Concomitant]
     Route: 064
  3. VALPROAT [Concomitant]
     Route: 064
  4. CHLORPROTHIXENE [Concomitant]
     Route: 064
  5. L-THYROXIN [Concomitant]
     Route: 064
     Dates: start: 20111103, end: 20120817
  6. FOLIO [Concomitant]
     Indication: PROPHYLAXIS OF NEURAL TUBE DEFECT
     Route: 064
     Dates: end: 20120817

REACTIONS (2)
  - Exposure during pregnancy [Recovered/Resolved]
  - Apnoea neonatal [Recovered/Resolved]
